FAERS Safety Report 9661335 (Version 1)
Quarter: 2013Q4

REPORT INFORMATION
  Report Type: Spontaneous
  Country: US (occurrence: None)
  Receive Date: 20131030
  Receipt Date: 20131030
  Transmission Date: 20140711
  Serious: Yes (Life-Threatening, Hospitalization)
  Sender: FDA-Public Use
  Company Number: 2280705-2013-00064

PATIENT
  Age: 16 Year
  Sex: Female

DRUGS (4)
  1. ORAJEL FOR TOOTHACHE MAXIMUM STRENGTH [Suspect]
     Indication: ORAL PAIN
     Route: 048
     Dates: start: 20111124
  2. DOXYCYCLINE [Concomitant]
  3. LUTERA [Concomitant]
  4. SPIRONOLACTONE [Concomitant]

REACTIONS (2)
  - Syncope [None]
  - Methaemoglobinaemia [None]
